FAERS Safety Report 12496664 (Version 4)
Quarter: 2020Q2

REPORT INFORMATION
  Report Type: Report from Study
  Country: US (occurrence: US)
  Receive Date: 20160624
  Receipt Date: 20200518
  Transmission Date: 20200713
  Serious: Yes (Hospitalization, Other)
  Sender: FDA-Public Use
  Company Number: US-ACTELION-A-US2015-118686

PATIENT
  Age: 49 Year
  Sex: Male
  Weight: 68.48 kg

DRUGS (3)
  1. REVATIO [Concomitant]
     Active Substance: SILDENAFIL CITRATE
  2. COUMADIN [Concomitant]
     Active Substance: WARFARIN SODIUM
  3. OPSUMIT [Suspect]
     Active Substance: MACITENTAN
     Indication: PULMONARY HYPERTENSION
     Dosage: 10 MG, QD
     Route: 048
     Dates: start: 20141208

REACTIONS (19)
  - Pulmonary thrombosis [Recovering/Resolving]
  - Fatigue [Unknown]
  - Respiratory arrest [Unknown]
  - Oedema [Unknown]
  - Hypotension [Unknown]
  - Pulmonary endarterectomy [Recovering/Resolving]
  - Fluid retention [Unknown]
  - Chest pain [Unknown]
  - Dyspnoea exertional [Unknown]
  - Heart rate increased [Unknown]
  - Dizziness [Unknown]
  - Dyspnoea [Unknown]
  - Presyncope [Unknown]
  - Oxygen saturation decreased [Recovering/Resolving]
  - Exercise tolerance decreased [Unknown]
  - Ascites [Unknown]
  - Oedema peripheral [Unknown]
  - Pulmonary oedema [Unknown]
  - Cough [Unknown]

NARRATIVE: CASE EVENT DATE: 20160526
